FAERS Safety Report 23243362 (Version 1)
Quarter: 2023Q4

REPORT INFORMATION
  Report Type: Spontaneous
  Country: FR (occurrence: FR)
  Receive Date: 20231130
  Receipt Date: 20231130
  Transmission Date: 20240110
  Serious: Yes (Other)
  Sender: FDA-Public Use
  Company Number: FR-STRIDES ARCOLAB LIMITED-2023SP017711

PATIENT

DRUGS (6)
  1. PREDNISOLONE [Suspect]
     Active Substance: PREDNISOLONE
     Indication: Follicular lymphoma
     Dosage: UNK, (AS AN INDUCTION THERAPY)
     Route: 065
  2. DOXORUBICIN [Suspect]
     Active Substance: DOXORUBICIN
     Indication: Follicular lymphoma
     Dosage: 50 MILLIGRAM/SQ. METER, (ON DAY 1, AS AN INDUCTION THERAPY)
     Route: 065
  3. CYCLOPHOSPHAMIDE [Suspect]
     Active Substance: CYCLOPHOSPHAMIDE
     Indication: Follicular lymphoma
     Dosage: 750 MILLIGRAM/SQ. METER, (ON DAY 1, AS AN INDUCTION THERAPY)
     Route: 065
  4. VINCRISTINE [Suspect]
     Active Substance: VINCRISTINE
     Indication: Follicular lymphoma
     Dosage: 1.4 MILLIGRAM/SQ. METER, (ON DAY 1, AS AN INDUCTION THERAPY)
     Route: 065
  5. OBINUTUZUMAB [Suspect]
     Active Substance: OBINUTUZUMAB
     Indication: Follicular lymphoma
     Dosage: 1000 MILLIGRAM, (AS AN INDUCTION THERAPY)
     Route: 042
  6. OBINUTUZUMAB [Suspect]
     Active Substance: OBINUTUZUMAB
     Dosage: 1000 MILLIGRAM, CYCLICAL (EVERY 2 MONTHS INFUSION WAS USED AS A MAINTENANCE DOSE, 10 CYCLES)
     Route: 042

REACTIONS (2)
  - Hypogammaglobulinaemia [Unknown]
  - Lymphopenia [Unknown]
